FAERS Safety Report 4739621-5 (Version None)
Quarter: 2005Q3

REPORT INFORMATION
  Report Type: 
  Country: None (occurrence: None)
  Receive Date: 20050810
  Receipt Date: 20050412
  Transmission Date: 20060218
  Serious: No
  Sender: FDA-Public Use
  Company Number: US-GLAXOSMITHKLINE-A0554074A

PATIENT
  Sex: Female

DRUGS (2)
  1. PAXIL [Suspect]
     Indication: DEPRESSION
     Route: 048
  2. WELLBUTRIN [Concomitant]

REACTIONS (5)
  - DIZZINESS [None]
  - DRUG WITHDRAWAL SYNDROME [None]
  - NAUSEA [None]
  - TINNITUS [None]
  - WEIGHT INCREASED [None]
